FAERS Safety Report 4954993-4 (Version None)
Quarter: 2006Q1

REPORT INFORMATION
  Report Type: 
  Country: None (occurrence: None)
  Receive Date: 20060322
  Receipt Date: 20060308
  Transmission Date: 20060701
  Serious: Yes (Hospitalization, Other)
  Sender: FDA-Public Use
  Company Number: 2006034192

PATIENT
  Age: 49 Year
  Sex: Male
  Weight: 115.6672 kg

DRUGS (7)
  1. TIKOSYN [Suspect]
     Indication: ATRIAL FIBRILLATION
     Dosage: 1125 MCG EVERY DAY
  2. ZESTRIL [Concomitant]
  3. ATENOLOL [Concomitant]
  4. WARFARIN [Concomitant]
  5. ZYRTEC [Concomitant]
  6. HYDROXYZINE [Concomitant]
  7. NASAREL (FLUNISOLIDE) [Concomitant]

REACTIONS (7)
  - BACTERIAL INFECTION [None]
  - CHEST DISCOMFORT [None]
  - COUGH [None]
  - DELIRIUM FEBRILE [None]
  - PYREXIA [None]
  - RALES [None]
  - VIRAL INFECTION [None]
